FAERS Safety Report 5529544-6 (Version None)
Quarter: 2007Q4

REPORT INFORMATION
  Report Type: 
  Country: None (occurrence: None)
  Receive Date: 20071129
  Receipt Date: 20071115
  Transmission Date: 20080405
  Serious: Yes (Life-Threatening, Hospitalization, Other)
  Sender: FDA-Public Use
  Company Number: FR-GENENTECH-234748

PATIENT
  Sex: Female
  Weight: 62 kg

DRUGS (11)
  1. RITUXIMAB [Suspect]
     Indication: RHEUMATOID ARTHRITIS
     Dosage: 1000 MG, DAYS 1+15
     Route: 042
     Dates: start: 20061130, end: 20070221
  2. ADALIMUMAB [Suspect]
     Indication: DRUG USE FOR UNKNOWN INDICATION
  3. METHOTREXATE [Concomitant]
     Indication: DRUG USE FOR UNKNOWN INDICATION
     Dosage: 12.5 MG, 1/WEEK
  4. CARTRAX [Concomitant]
     Dosage: 100 MG, QD
     Dates: start: 20050101
  5. ACTONEL [Concomitant]
     Indication: DRUG USE FOR UNKNOWN INDICATION
     Dosage: 35 MG, 1/WEEK
     Dates: start: 20010101
  6. OMEPRAZOLE [Concomitant]
     Indication: DRUG USE FOR UNKNOWN INDICATION
     Dosage: 1200 MG, UNK
     Dates: start: 20020101
  7. SPECIAFOLDINE [Concomitant]
     Indication: DRUG USE FOR UNKNOWN INDICATION
  8. CORDEX [Concomitant]
     Indication: DRUG USE FOR UNKNOWN INDICATION
     Dosage: 100 MG, QD
     Dates: start: 20051001, end: 20070119
  9. DI-ANTALVIC [Concomitant]
     Indication: DRUG USE FOR UNKNOWN INDICATION
  10. CHONDROITIN SULPHATE [Concomitant]
     Indication: DRUG USE FOR UNKNOWN INDICATION
  11. CARBOPLATIN [Concomitant]

REACTIONS (2)
  - ABDOMINAL DISTENSION [None]
  - PYREXIA [None]
